FAERS Safety Report 16920161 (Version 1)
Quarter: 2019Q4

REPORT INFORMATION
  Report Type: Spontaneous
  Country: US (occurrence: US)
  Receive Date: 20191015
  Receipt Date: 20191015
  Transmission Date: 20200122
  Serious: No
  Sender: FDA-Public Use
  Company Number: US-SLATE RUN PHARMACEUTICALS-SLTR-AE-19-82

PATIENT
  Age: 52 Year
  Sex: Female

DRUGS (7)
  1. HYDROXYZINE [Concomitant]
     Active Substance: HYDROXYZINE HYDROCHLORIDE
     Indication: ANXIETY
  2. FUROSEMIDE. [Suspect]
     Active Substance: FUROSEMIDE
     Indication: OEDEMA PERIPHERAL
  3. DESVENLAFAXINE ER TABLETS [Suspect]
     Active Substance: DESVENLAFAXINE
     Indication: MAJOR DEPRESSION
  4. THIAMINE. [Concomitant]
     Active Substance: THIAMINE
  5. FOLIC ACID. [Concomitant]
     Active Substance: FOLIC ACID
  6. TRAMADOL. [Suspect]
     Active Substance: TRAMADOL
     Indication: COCCYDYNIA
  7. MULTIVITAMIN [Concomitant]
     Active Substance: VITAMINS

REACTIONS (1)
  - Hyponatraemia [Recovering/Resolving]
